FAERS Safety Report 25149684 (Version 1)
Quarter: 2025Q2

REPORT INFORMATION
  Report Type: Spontaneous
  Country: RO (occurrence: RO)
  Receive Date: 20250402
  Receipt Date: 20250402
  Transmission Date: 20250717
  Serious: Yes (Hospitalization, Other)
  Sender: GLAND PHARMA
  Company Number: RO-GLANDPHARMA-RO-2025GLNLIT00909

PATIENT

DRUGS (1)
  1. FLUOROURACIL [Suspect]
     Active Substance: FLUOROURACIL
     Indication: Product used for unknown indication
     Route: 065

REACTIONS (6)
  - Skin toxicity [Unknown]
  - Hyperkeratosis [Unknown]
  - Skin fissures [Unknown]
  - Skin exfoliation [Unknown]
  - Pain [Unknown]
  - Diarrhoea [Unknown]
